FAERS Safety Report 6065772-1 (Version None)
Quarter: 2009Q1

REPORT INFORMATION
  Report Type: 
  Country: None (occurrence: None)
  Receive Date: 20090130
  Receipt Date: 20090120
  Transmission Date: 20090719
  Serious: Yes (Hospitalization, Other)
  Sender: FDA-Public Use
  Company Number: PAR_02329_2008

PATIENT
  Sex: Female

DRUGS (8)
  1. IBUPROFEN TABLETS [Suspect]
     Indication: PAIN
     Dosage: (DF)
  2. RIVAROXABAN 20 MG OR WARFARIN (1, 2.5, OR 5 MG) [Suspect]
     Indication: CEREBROVASCULAR ACCIDENT
     Dosage: (1 DF QD ORAL)
     Route: 048
     Dates: start: 20080507, end: 20080803
  3. RIVAROXABAN 20 MG OR WARFARIN (1, 2.5, OR 5 MG) [Suspect]
     Indication: EMBOLISM
     Dosage: (1 DF QD ORAL)
     Route: 048
     Dates: start: 20080507, end: 20080803
  4. RIVAROXABAN 20 MG OR WARFARIN (1, 2.5, OR 5 MG) [Suspect]
     Indication: PROPHYLAXIS
     Dosage: (1 DF QD ORAL)
     Route: 048
     Dates: start: 20080507, end: 20080803
  5. RIVAROXABAN 20 MG OR WARFARIN (1, 2.5, OR 5 MG) [Suspect]
     Indication: CEREBROVASCULAR ACCIDENT
     Dosage: (1 DF QD ORAL)
     Route: 048
     Dates: start: 20080820
  6. RIVAROXABAN 20 MG OR WARFARIN (1, 2.5, OR 5 MG) [Suspect]
     Indication: EMBOLISM
     Dosage: (1 DF QD ORAL)
     Route: 048
     Dates: start: 20080820
  7. RIVAROXABAN 20 MG OR WARFARIN (1, 2.5, OR 5 MG) [Suspect]
     Indication: PROPHYLAXIS
     Dosage: (1 DF QD ORAL)
     Route: 048
     Dates: start: 20080820
  8. OLFEN /00372301/ [Concomitant]

REACTIONS (12)
  - ACTIVATED PARTIAL THROMBOPLASTIN TIME PROLONGED [None]
  - ARTHRALGIA [None]
  - COAGULOPATHY [None]
  - HAEMARTHROSIS [None]
  - HAEMATOMA [None]
  - HAEMOGLOBIN DECREASED [None]
  - INTENTIONAL DRUG MISUSE [None]
  - INTERNATIONAL NORMALISED RATIO ABNORMAL [None]
  - JOINT EFFUSION [None]
  - LEUKOCYTOSIS [None]
  - PROTHROMBIN LEVEL ABNORMAL [None]
  - RED BLOOD CELL COUNT DECREASED [None]
